FAERS Safety Report 4564960-0 (Version None)
Quarter: 2005Q1

REPORT INFORMATION
  Report Type: 
  Country: None (occurrence: None)
  Receive Date: 20050131
  Receipt Date: 20050119
  Transmission Date: 20050727
  Serious: Yes (Hospitalization)
  Sender: FDA-Public Use
  Company Number: US-JNJFOC-20050105205

PATIENT
  Sex: Female
  Weight: 63.5 kg

DRUGS (3)
  1. DURAGESIC [Suspect]
     Route: 062
  2. MORPHINE SULFATE [Concomitant]
     Indication: THERAPEUTIC RESPONSE DECREASED
  3. MORPHINE [Concomitant]
     Route: 041

REACTIONS (3)
  - ARTHRALGIA [None]
  - BONE DISORDER [None]
  - PAIN IN EXTREMITY [None]
